FAERS Safety Report 9184303 (Version 1)
Quarter: 2013Q1

REPORT INFORMATION
  Report Type: Spontaneous
  Country: US (occurrence: US)
  Receive Date: 20130322
  Receipt Date: 20130322
  Transmission Date: 20140127
  Serious: No
  Sender: FDA-Public Use
  Company Number: US-009507513-1303USA008467

PATIENT
  Age: 58 Year
  Sex: Male

DRUGS (6)
  1. JANUVIA [Suspect]
     Route: 048
  2. METFORMIN [Concomitant]
  3. LANTUS [Concomitant]
  4. NOVOLOG [Concomitant]
  5. AMARYL [Concomitant]
  6. LISINOPRIL [Concomitant]

REACTIONS (2)
  - Blister [Unknown]
  - Rash [Unknown]
